FAERS Safety Report 9979292 (Version 1)
Quarter: 2014Q1

REPORT INFORMATION
  Report Type: Report from Study
  Country: US (occurrence: US)
  Receive Date: 20140306
  Receipt Date: 20140306
  Transmission Date: 20141002
  Serious: No
  Sender: FDA-Public Use
  Company Number: US-ABBVIE-13P-163-1169591-00

PATIENT
  Age: 70 Year
  Sex: Female

DRUGS (9)
  1. HUMIRA [Suspect]
     Indication: CROHN^S DISEASE
     Route: 058
     Dates: start: 20131010
  2. HUMIRA [Suspect]
     Route: 058
     Dates: start: 201311
  3. HYDROCHLOROTHIAZIDE [Concomitant]
     Indication: PRODUCT USED FOR UNKNOWN INDICATION
  4. LISINOPRIL [Concomitant]
     Indication: BLOOD PRESSURE
  5. ASACOL [Concomitant]
     Indication: CROHN^S DISEASE
  6. HYOSCYAMINE [Concomitant]
     Indication: DIARRHOEA
  7. HYOSCYAMINE [Concomitant]
     Indication: MUSCLE SPASMS
  8. PRILOSEC [Concomitant]
     Indication: GASTRIC DISORDER
  9. ALBUTEROL [Concomitant]
     Indication: PRODUCT USED FOR UNKNOWN INDICATION
     Dosage: INHALER AND NEBULISER

REACTIONS (2)
  - Chills [Recovered/Resolved]
  - Oropharyngeal pain [Recovered/Resolved]
